FAERS Safety Report 4848213-9 (Version None)
Quarter: 2005Q4

REPORT INFORMATION
  Report Type: 
  Country: None (occurrence: None)
  Receive Date: 20051206
  Receipt Date: 20051118
  Transmission Date: 20060501
  Serious: Yes (Other)
  Sender: FDA-Public Use
  Company Number: US200511001962

PATIENT
  Age: 10 Year
  Sex: Male
  Weight: 40.8 kg

DRUGS (3)
  1. STRATTERA [Suspect]
     Indication: ATTENTION DEFICIT/HYPERACTIVITY DISORDER
     Dosage: 60 MG, DAILY (1/D), ORAL; 60 MG, OTHER, ORAL
     Route: 048
     Dates: start: 20051108, end: 20051101
  2. STRATTERA [Suspect]
     Indication: ATTENTION DEFICIT/HYPERACTIVITY DISORDER
     Dosage: 60 MG, DAILY (1/D), ORAL; 60 MG, OTHER, ORAL
     Route: 048
     Dates: start: 20030101, end: 20051107
  3. ZOMIG [Concomitant]

REACTIONS (11)
  - CONFUSIONAL STATE [None]
  - DYSPNOEA [None]
  - EYE MOVEMENT DISORDER [None]
  - FALL [None]
  - HEADACHE [None]
  - NERVOUS SYSTEM DISORDER [None]
  - PETIT MAL EPILEPSY [None]
  - PRESCRIBED OVERDOSE [None]
  - SOMNOLENCE [None]
  - STARING [None]
  - TREMOR [None]
